FAERS Safety Report 20087074 (Version 2)
Quarter: 2021Q4

REPORT INFORMATION
  Report Type: Spontaneous
  Country: US (occurrence: US)
  Receive Date: 20211118
  Receipt Date: 20211129
  Transmission Date: 20220303
  Serious: Yes (Hospitalization)
  Sender: FDA-Public Use
  Company Number: US-TEVA-2021-US-1977487

PATIENT
  Age: 25 Year
  Sex: Female

DRUGS (2)
  1. DOXYCYCLINE [Suspect]
     Active Substance: DOXYCYCLINE
     Indication: Urethritis
     Route: 065
  2. IBUPROFEN [Suspect]
     Active Substance: IBUPROFEN
     Indication: Product used for unknown indication
     Dosage: LESS THAN 4 TO 5 DOSES OF IBUPROFEN MONTHLY
     Route: 065

REACTIONS (3)
  - Gastric ulcer [Recovering/Resolving]
  - Gastric ulcer perforation [Recovering/Resolving]
  - Pneumoperitoneum [Recovering/Resolving]
